FAERS Safety Report 8471999 (Version 9)
Quarter: 2013Q4

REPORT INFORMATION
  Report Type: Spontaneous
  Country: US (occurrence: US)
  Receive Date: 20120322
  Receipt Date: 20131231
  Transmission Date: 20140711
  Serious: Yes (Hospitalization, Other)
  Sender: FDA-Public Use
  Company Number: US-JNJFOC-20111109040

PATIENT
  Sex: Female

DRUGS (13)
  1. TOPAMAX [Suspect]
     Indication: ANXIETY
     Route: 048
  2. TOPAMAX [Suspect]
     Indication: ANXIETY
     Route: 048
     Dates: start: 2001, end: 2007
  3. TOPAMAX [Suspect]
     Indication: BIPOLAR DISORDER
     Route: 048
  4. TOPAMAX [Suspect]
     Indication: BIPOLAR DISORDER
     Route: 048
     Dates: start: 2001, end: 2007
  5. CLINDAMYCIN [Suspect]
     Indication: BACTERIAL INFECTION
     Route: 067
  6. TERBUTALINE [Suspect]
     Indication: PREMATURE LABOUR
     Route: 048
  7. PROMETRIUM [Suspect]
     Indication: PREGNANCY
     Route: 048
  8. LEXAPRO [Suspect]
     Indication: BIPOLAR DISORDER
     Route: 048
  9. LITHIUM CARBONATE [Suspect]
     Indication: BIPOLAR DISORDER
     Route: 048
  10. ZITHROMAX [Suspect]
     Indication: PRODUCT USED FOR UNKNOWN INDICATION
     Route: 065
  11. BETAMETHASONE [Suspect]
     Indication: PRODUCT USED FOR UNKNOWN INDICATION
     Route: 065
  12. NIFEDIPINE [Suspect]
     Indication: PRODUCT USED FOR UNKNOWN INDICATION
     Route: 065
  13. AMPICILLIN [Suspect]
     Indication: PRODUCT USED FOR UNKNOWN INDICATION
     Route: 065

REACTIONS (7)
  - Premature rupture of membranes [Unknown]
  - Premature delivery [Recovered/Resolved]
  - Exposure during pregnancy [Recovered/Resolved]
  - Amniotic cavity infection [Unknown]
  - Bipolar disorder [Unknown]
  - Premature separation of placenta [Unknown]
  - Emotional distress [Unknown]
